FAERS Safety Report 18136167 (Version 8)
Quarter: 2021Q4

REPORT INFORMATION
  Report Type: Spontaneous
  Country: US (occurrence: US)
  Receive Date: 20200811
  Receipt Date: 20211213
  Transmission Date: 20220303
  Serious: Yes (Other)
  Sender: FDA-Public Use
  Company Number: US-PFIZER INC-2020306077

PATIENT
  Age: 59 Year
  Sex: Female
  Weight: 72.57 kg

DRUGS (3)
  1. PHENYTOIN SODIUM [Suspect]
     Active Substance: PHENYTOIN SODIUM
     Indication: Focal dyscognitive seizures
     Dosage: UNK
     Dates: start: 2006
  2. PHENYTOIN SODIUM [Suspect]
     Active Substance: PHENYTOIN SODIUM
     Dosage: STRENGTH: 100 MG (QUANTITY FOR 90 DAYS: 360 TABS)
  3. PHENYTOIN SODIUM [Suspect]
     Active Substance: PHENYTOIN SODIUM
     Dosage: STRENGTH: 30 MG (QUANTITY FOR 90 DAYS: 90 TABS)

REACTIONS (3)
  - Seizure [Unknown]
  - Drug intolerance [Unknown]
  - Fatigue [Unknown]
